FAERS Safety Report 5028836-7 (Version None)
Quarter: 2006Q2

REPORT INFORMATION
  Report Type: 
  Country: None (occurrence: None)
  Receive Date: 20060501
  Receipt Date: 20060228
  Transmission Date: 20061013
  Serious: No
  Sender: FDA-Public Use
  Company Number: 200612069US

PATIENT
  Sex: Female
  Weight: 68.18 kg

DRUGS (8)
  1. KETEK [Suspect]
     Indication: SINUSITIS
     Dosage: 800 MG/DAY
     Dates: start: 20060206, end: 20060209
  2. ADVIL [Concomitant]
  3. ASPIRIN [Concomitant]
  4. ETHANOL [Concomitant]
  5. PARACETAMOL [Concomitant]
  6. DEXTROMETHOPHAN HYDROBROMIDE [Concomitant]
  7. EPHEDRINE SULFATE [Concomitant]
  8. DOXYLAMINE SUCCINATE (NYQUIL) [Concomitant]

REACTIONS (5)
  - ABDOMINAL PAIN UPPER [None]
  - ALANINE AMINOTRANSFERASE INCREASED [None]
  - ASPARTATE AMINOTRANSFERASE INCREASED [None]
  - BLOOD ALKALINE PHOSPHATASE INCREASED [None]
  - HEPATIC ENZYME INCREASED [None]
